FAERS Safety Report 20247304 (Version 2)
Quarter: 2022Q1

REPORT INFORMATION
  Report Type: Spontaneous
  Country: JP (occurrence: JP)
  Receive Date: 20211229
  Receipt Date: 20220201
  Transmission Date: 20220423
  Serious: Yes (Hospitalization)
  Sender: FDA-Public Use
  Company Number: JP-OTSUKA-2021_039723

PATIENT
  Age: 26 Year
  Sex: Male

DRUGS (9)
  1. ABILIFY [Suspect]
     Active Substance: ARIPIPRAZOLE
     Indication: Schizophrenia
     Dosage: UNK
     Route: 030
  2. ABILIFY [Suspect]
     Active Substance: ARIPIPRAZOLE
     Indication: Hallucination
     Dosage: 300MG/SHOT, UNK
     Route: 030
     Dates: start: 20210917
  3. ABILIFY [Suspect]
     Active Substance: ARIPIPRAZOLE
     Indication: Delusion
  4. ABILIFY [Suspect]
     Active Substance: ARIPIPRAZOLE
     Indication: Hallucination
     Dosage: 12MG/DAY, UNK
     Route: 048
     Dates: start: 20210402, end: 20210923
  5. ABILIFY [Suspect]
     Active Substance: ARIPIPRAZOLE
     Indication: Delusion
  6. ARIPIPRAZOLE [Suspect]
     Active Substance: ARIPIPRAZOLE
     Indication: Product used for unknown indication
     Dosage: 24 MG, QD
     Route: 048
     Dates: start: 20211112
  7. RIVOTRIL [Concomitant]
     Active Substance: CLONAZEPAM
     Indication: Seizure
     Dosage: 1.5 MG, QD
     Route: 048
     Dates: start: 20210402
  8. RIVOTRIL [Concomitant]
     Active Substance: CLONAZEPAM
     Dosage: 1 MG, QD
     Route: 048
     Dates: start: 20210416, end: 20210923
  9. RIVOTRIL [Concomitant]
     Active Substance: CLONAZEPAM
     Dosage: 2 MG, QD
     Route: 048
     Dates: start: 20211110

REACTIONS (1)
  - Myoclonus [Recovering/Resolving]

NARRATIVE: CASE EVENT DATE: 20211107
